FAERS Safety Report 19195258 (Version 2)
Quarter: 2021Q2

REPORT INFORMATION
  Report Type: Spontaneous
  Country: DE (occurrence: DE)
  Receive Date: 20210429
  Receipt Date: 20210429
  Transmission Date: 20210717
  Serious: Yes (Death, Hospitalization, Other)
  Sender: FDA-Public Use
  Company Number: DE-PFIZER INC-8-0000010911

PATIENT
  Age: 70 Year
  Sex: Female

DRUGS (2)
  1. RHEUMATREX [Suspect]
     Active Substance: METHOTREXATE SODIUM
     Indication: RENAL FAILURE
  2. RHEUMATREX [Suspect]
     Active Substance: METHOTREXATE SODIUM
     Indication: PSORIATIC ARTHROPATHY
     Dosage: 5 MG, WEEKLY
     Route: 048
     Dates: start: 19880801, end: 19890202

REACTIONS (4)
  - Pancytopenia [Fatal]
  - Interstitial lung disease [Fatal]
  - Myelosuppression [Fatal]
  - Respiratory failure [Fatal]

NARRATIVE: CASE EVENT DATE: 19890202
